FAERS Safety Report 4505776-0 (Version None)
Quarter: 2004Q4

REPORT INFORMATION
  Report Type: 
  Country: None (occurrence: None)
  Receive Date: 20041119
  Receipt Date: 20041116
  Transmission Date: 20050328
  Serious: Yes (Death)
  Sender: FDA-Public Use
  Company Number: BR-MERCK-0411BRA00123

PATIENT
  Sex: Female

DRUGS (1)
  1. VIOXX [Suspect]
     Indication: POSTOPERATIVE CARE
     Route: 048

REACTIONS (1)
  - DEATH [None]
